FAERS Safety Report 12776997 (Version 1)
Quarter: 2016Q3

REPORT INFORMATION
  Report Type: Spontaneous
  Country: US (occurrence: US)
  Receive Date: 20160923
  Receipt Date: 20160923
  Transmission Date: 20161109
  Serious: No
  Sender: FDA-Public Use
  Company Number: US-ASTRAZENECA-2016SE97406

PATIENT
  Sex: Female
  Weight: 90.7 kg

DRUGS (4)
  1. SYMBICORT [Suspect]
     Active Substance: BUDESONIDE\FORMOTEROL FUMARATE DIHYDRATE
     Indication: ASTHMA
     Dosage: 160/4.5 UG, TWO EXTRA PUFFS IN ADDITION TO DAILY TWO TWICE A DAY, CALCULATING UPTO SIX PUFFS PER DAY
     Route: 055
  2. SYMBICORT [Suspect]
     Active Substance: BUDESONIDE\FORMOTEROL FUMARATE DIHYDRATE
     Indication: ASTHMA
     Dosage: 160/4.5 UG, TWO PUFFS TWO TIMES A DAY
     Route: 055
  3. LISINOPRIL. [Suspect]
     Active Substance: LISINOPRIL
     Indication: HYPERTENSION
     Dosage: 10/12.5 MG, DAILY
     Route: 048
  4. RESCUE INHALER  NR [Concomitant]
     Indication: ASTHMA
     Route: 055

REACTIONS (5)
  - Asthma [Not Recovered/Not Resolved]
  - Underdose [Unknown]
  - Intentional product misuse [Unknown]
  - Product quality issue [Not Recovered/Not Resolved]
  - Hypertension [Unknown]
